FAERS Safety Report 9251726 (Version 1)
Quarter: 2013Q2

REPORT INFORMATION
  Report Type: Spontaneous
  Country: US (occurrence: US)
  Receive Date: 20130424
  Receipt Date: 20130424
  Transmission Date: 20140414
  Serious: No
  Sender: FDA-Public Use
  Company Number: US-PFIZER INC-2013124332

PATIENT
  Age: 63 Year
  Sex: Male
  Weight: 79.37 kg

DRUGS (6)
  1. LIPITOR [Suspect]
     Indication: CARDIAC DISORDER
     Dosage: 10 MG, 1X/DAY
     Route: 048
  2. LIPITOR [Suspect]
     Dosage: 40 MG, 1X/DAY
     Route: 048
     Dates: end: 201303
  3. ATORVASTATIN CALCIUM [Suspect]
     Indication: CARDIAC DISORDER
     Dosage: 40 MG, 1X/DAY
     Route: 048
     Dates: start: 201303, end: 201303
  4. METOPROLOL [Concomitant]
     Indication: CARDIAC DISORDER
     Dosage: UNK
  5. PLAVIX [Concomitant]
     Indication: CARDIAC DISORDER
     Dosage: UNK
  6. LISINOPRIL [Concomitant]
     Indication: CARDIAC DISORDER
     Dosage: UNK

REACTIONS (2)
  - Nausea [Unknown]
  - Muscle spasms [Unknown]
